FAERS Safety Report 8373666-1 (Version None)
Quarter: 2012Q2

REPORT INFORMATION
  Report Type: 
  Country: None (occurrence: None)
  Receive Date: 20120521
  Receipt Date: 20120316
  Transmission Date: 20120825
  Serious: No
  Sender: FDA-Public Use
  Company Number: US-MYLANLABS-2012S1004034

PATIENT
  Age: 58 Year
  Sex: Female

DRUGS (12)
  1. SIMVASTATIN [Concomitant]
  2. METHOCARBAMOL [Concomitant]
  3. AMLODIPINE BESYLATE [Concomitant]
  4. BENAZEPRIL HYDROCHLORIDE [Concomitant]
  5. DICLOFENAC SODIUM [Concomitant]
  6. DICYCLOMINE [Concomitant]
  7. LEVOTHYROXINE SODIUM [Concomitant]
  8. DICYCLOMINE [Concomitant]
  9. LANSOPRAZOLE [Suspect]
     Indication: GASTROOESOPHAGEAL REFLUX DISEASE
     Route: 048
     Dates: start: 20110901
  10. METAMUCIL-2 [Concomitant]
  11. AMITRIPTYLINE HCL [Concomitant]
  12. HYDROCODONE [Concomitant]

REACTIONS (2)
  - GASTROOESOPHAGEAL REFLUX DISEASE [None]
  - DRUG EFFECT DECREASED [None]
